FAERS Safety Report 11600169 (Version 1)
Quarter: 2015Q4

REPORT INFORMATION
  Report Type: Spontaneous
  Country: US (occurrence: US)
  Receive Date: 20151006
  Receipt Date: 20151006
  Transmission Date: 20160304
  Serious: No
  Sender: FDA-Public Use
  Company Number: US-AMGEN-USASP2014088332

PATIENT
  Age: 62 Year
  Sex: Female

DRUGS (4)
  1. VITAMIN C [Concomitant]
     Active Substance: ASCORBIC ACID
  2. VITAMIN D                          /00107901/ [Concomitant]
     Active Substance: ERGOCALCIFEROL
  3. PROLIA [Suspect]
     Active Substance: DENOSUMAB
     Indication: OSTEOPOROSIS
     Dosage: UNK
     Route: 065
     Dates: start: 20120804
  4. CALCIUM                            /00060701/ [Concomitant]
     Active Substance: CALCIUM

REACTIONS (10)
  - Influenza like illness [Recovering/Resolving]
  - Jaw disorder [Recovering/Resolving]
  - Dizziness [Recovering/Resolving]
  - Vitamin D deficiency [Unknown]
  - Somnolence [Recovering/Resolving]
  - Pain [Recovering/Resolving]
  - Bone density decreased [Unknown]
  - Fatigue [Recovering/Resolving]
  - Tooth disorder [Recovering/Resolving]
  - Nausea [Recovering/Resolving]

NARRATIVE: CASE EVENT DATE: 20120804
